FAERS Safety Report 4686190-4 (Version None)
Quarter: 2005Q2

REPORT INFORMATION
  Report Type: 
  Country: None (occurrence: None)
  Receive Date: 20050606
  Receipt Date: 20050524
  Transmission Date: 20051028
  Serious: Yes (Hospitalization, Other)
  Sender: FDA-Public Use
  Company Number: USA030639024

PATIENT
  Age: 80 Year
  Sex: Female
  Weight: 52 kg

DRUGS (17)
  1. FORTEO [Suspect]
     Indication: OSTEOPOROSIS
     Dosage: 20 UG DAY
     Dates: start: 20030602
  2. QUININE [Concomitant]
  3. SYNTHROID [Concomitant]
  4. PRILOSEC [Concomitant]
  5. ATACAND HCT [Concomitant]
  6. LEVAQUINN (LEVOFLOXACIN) [Concomitant]
  7. TYLENOL [Concomitant]
  8. GLUCOSAMINE CHONDROITIN [Concomitant]
  9. CALCIUM GLUCONATE [Concomitant]
  10. MULTI-VITAMIN [Concomitant]
  11. MULTIVITAMINS NOS (MULTIVITAMINS NOS) [Concomitant]
  12. FOLIC ACID [Concomitant]
  13. VITAMIN A [Concomitant]
  14. K-DUR 10 [Concomitant]
  15. PRAVACHOL [Concomitant]
  16. ASPIRIN [Concomitant]
  17. IBUPROFEN [Concomitant]

REACTIONS (30)
  - ALOPECIA [None]
  - BALANCE DISORDER [None]
  - BLOOD PRESSURE INCREASED [None]
  - CARDIAC ARREST [None]
  - CARDIAC VALVE DISEASE [None]
  - DEPRESSION [None]
  - DYSPEPSIA [None]
  - DYSPNOEA [None]
  - EPISTAXIS [None]
  - FALL [None]
  - FATIGUE [None]
  - GINGIVAL BLEEDING [None]
  - HAEMOGLOBIN INCREASED [None]
  - HEARING IMPAIRED [None]
  - HYPOAESTHESIA [None]
  - HYPOTRICHOSIS [None]
  - INJECTION SITE HAEMORRHAGE [None]
  - INJECTION SITE PAIN [None]
  - MICTURITION URGENCY [None]
  - MIDDLE INSOMNIA [None]
  - MUSCLE SPASMS [None]
  - PARALYSIS [None]
  - PHARMACEUTICAL PRODUCT COMPLAINT [None]
  - RECTAL HAEMORRHAGE [None]
  - RENAL CYST [None]
  - SLEEP APNOEA SYNDROME [None]
  - SOMNOLENCE [None]
  - SYNCOPE [None]
  - VISUAL DISTURBANCE [None]
  - WEIGHT DECREASED [None]
